FAERS Safety Report 14867952 (Version 1)
Quarter: 2018Q2

REPORT INFORMATION
  Report Type: Report from Study
  Country: US (occurrence: US)
  Receive Date: 20180509
  Receipt Date: 20180509
  Transmission Date: 20180711
  Serious: Yes (Other)
  Sender: FDA-Public Use
  Company Number: US-ROCHE-2117823

PATIENT

DRUGS (1)
  1. DIAZEPAM. [Suspect]
     Active Substance: DIAZEPAM
     Indication: STATUS EPILEPTICUS
     Dosage: 0.1-0.15 MG/KG
     Route: 042

REACTIONS (4)
  - Hypoventilation [Unknown]
  - Ataxia [Unknown]
  - Vomiting [Unknown]
  - Sedation complication [Unknown]
